FAERS Safety Report 4464532-2 (Version None)
Quarter: 2004Q3

REPORT INFORMATION
  Report Type: 
  Country: None (occurrence: None)
  Receive Date: 20040929
  Receipt Date: 20040920
  Transmission Date: 20050211
  Serious: Yes (Other)
  Sender: FDA-Public Use
  Company Number: HQWYE407818AUG04

PATIENT
  Age: 59 Year
  Sex: Female

DRUGS (2)
  1. EFFEXOR [Suspect]
     Indication: DEPRESSION
     Dosage: ^70 MG^, FREQUENTLY UNSPECIFIED, ORAL
     Route: 048
     Dates: start: 20040601
  2. SURMONTIL [Concomitant]

REACTIONS (5)
  - ABDOMINAL DISTENSION [None]
  - BREAST CANCER [None]
  - DRUG INEFFECTIVE [None]
  - DYSPEPSIA [None]
  - HOT FLUSH [None]
